FAERS Safety Report 18150794 (Version 2)
Quarter: 2020Q3

REPORT INFORMATION
  Report Type: Spontaneous
  Country: US (occurrence: US)
  Receive Date: 20200814
  Receipt Date: 20200908
  Transmission Date: 20201103
  Serious: No
  Sender: FDA-Public Use
  Company Number: US-HTU-2020US020903

PATIENT
  Sex: Male

DRUGS (17)
  1. VALCHLOR [Suspect]
     Active Substance: MECHLORETHAMINE
     Indication: CUTANEOUS T-CELL LYMPHOMA
     Dosage: UNK, 3/WEEK
     Route: 061
     Dates: start: 20200513, end: 2020
  2. GUANFACINE HCL [Concomitant]
     Active Substance: GUANFACINE HYDROCHLORIDE
  3. FOLIC ACID. [Concomitant]
     Active Substance: FOLIC ACID
  4. METFORMIN HCL [Concomitant]
     Active Substance: METFORMIN HYDROCHLORIDE
  5. FUROSEMIDE. [Concomitant]
     Active Substance: FUROSEMIDE
  6. CARBAMAZEPINE. [Concomitant]
     Active Substance: CARBAMAZEPINE
  7. SPIRONOLACTONE. [Concomitant]
     Active Substance: SPIRONOLACTONE
  8. VALCHLOR [Suspect]
     Active Substance: MECHLORETHAMINE
     Dosage: UNK, AS DIRECTED
     Route: 061
     Dates: start: 2020, end: 2020
  9. METOPROLOL SUCCINATE. [Concomitant]
     Active Substance: METOPROLOL SUCCINATE
  10. ATORVASTATIN CALCIUM. [Concomitant]
     Active Substance: ATORVASTATIN CALCIUM
  11. IRBESARTAN. [Concomitant]
     Active Substance: IRBESARTAN
  12. FENOFIBRATE. [Concomitant]
     Active Substance: FENOFIBRATE
  13. LYRICA [Concomitant]
     Active Substance: PREGABALIN
  14. ASPIRIN                            /00002701/ [Concomitant]
     Active Substance: ASPIRIN
  15. AMLODIPINE BESYLATE. [Concomitant]
     Active Substance: AMLODIPINE BESYLATE
  16. HUMULIN R [Concomitant]
     Active Substance: INSULIN HUMAN
  17. ALFUZOSIN HCL [Concomitant]
     Active Substance: ALFUZOSIN HYDROCHLORIDE

REACTIONS (10)
  - Off label use [Unknown]
  - Skin burning sensation [Unknown]
  - Condition aggravated [Unknown]
  - Rash [Recovered/Resolved]
  - Application site rash [Recovered/Resolved]
  - Dermatitis [Recovered/Resolved]
  - Pruritus [Recovered/Resolved]
  - Sleep disorder due to a general medical condition [Unknown]
  - Application site pruritus [Recovered/Resolved]
  - Blister [Unknown]

NARRATIVE: CASE EVENT DATE: 2020
